FAERS Safety Report 15225034 (Version 1)
Quarter: 2018Q3

REPORT INFORMATION
  Report Type: Spontaneous
  Country: US (occurrence: US)
  Receive Date: 20180801
  Receipt Date: 20180801
  Transmission Date: 20181010
  Serious: No
  Sender: FDA-Public Use
  Company Number: US-ASTRAZENECA-2018SE88456

PATIENT
  Sex: Male
  Weight: 86.2 kg

DRUGS (1)
  1. TUDORZA PRESSAIR [Suspect]
     Active Substance: ACLIDINIUM BROMIDE
     Indication: CHRONIC OBSTRUCTIVE PULMONARY DISEASE
     Dosage: 400.0UG UNKNOWN
     Route: 055

REACTIONS (4)
  - Device malfunction [Unknown]
  - Intentional device use issue [Unknown]
  - Hypoacusis [Not Recovered/Not Resolved]
  - Device failure [Unknown]
